FAERS Safety Report 23143928 (Version 2)
Quarter: 2023Q4

REPORT INFORMATION
  Report Type: Report from Study
  Country: CO (occurrence: CO)
  Receive Date: 20231103
  Receipt Date: 20231106
  Transmission Date: 20240109
  Serious: Yes (Hospitalization)
  Sender: FDA-Public Use
  Company Number: CO-AstraZeneca-2023A244483

PATIENT
  Age: 62 Day
  Sex: Male
  Weight: 2 kg

DRUGS (6)
  1. SYNAGIS [Suspect]
     Active Substance: PALIVIZUMAB
     Indication: Respiratory disorder
     Dosage: 15 MG/KG, MONTHLY
     Route: 030
     Dates: start: 20230630
  2. VITAMIN C [Concomitant]
     Active Substance: ASCORBIC ACID
     Indication: Product used for unknown indication
  3. HEMATON [Concomitant]
     Indication: Product used for unknown indication
  4. ESOMEPRAZOLE [Concomitant]
     Active Substance: ESOMEPRAZOLE
     Indication: Product used for unknown indication
  5. ALIPRID [Concomitant]
     Indication: Product used for unknown indication
  6. ALERVIDEN [Concomitant]
     Indication: Product used for unknown indication

REACTIONS (6)
  - Vomiting [Recovering/Resolving]
  - Influenza [Recovering/Resolving]
  - Food allergy [Recovering/Resolving]
  - Chest discomfort [Recovering/Resolving]
  - Productive cough [Unknown]
  - Underweight [Recovering/Resolving]

NARRATIVE: CASE EVENT DATE: 20230810
